FAERS Safety Report 22643311 (Version 1)
Quarter: 2023Q2

REPORT INFORMATION
  Report Type: Spontaneous
  Country: US (occurrence: None)
  Receive Date: 20230627
  Receipt Date: 20230627
  Transmission Date: 20230722
  Serious: Yes (Other)
  Sender: FDA-Public Use
  Company Number: US-ROCHE-3370449

PATIENT
  Age: 60 Year
  Sex: Female

DRUGS (4)
  1. OCREVUS [Suspect]
     Active Substance: OCRELIZUMAB
     Indication: Product used for unknown indication
     Route: 065
     Dates: start: 20200302, end: 202301
  2. KLONOPIN [Concomitant]
     Active Substance: CLONAZEPAM
  3. MYRBETRIQ [Concomitant]
     Active Substance: MIRABEGRON
  4. AUBAGIO [Concomitant]
     Active Substance: TERIFLUNOMIDE
     Indication: Multiple sclerosis
     Route: 048
     Dates: start: 20151215, end: 20200219

REACTIONS (8)
  - Multiple sclerosis relapse [Unknown]
  - Feeling abnormal [Recovering/Resolving]
  - Urinary tract infection [Recovering/Resolving]
  - Infection [Recovering/Resolving]
  - Cystitis [Recovered/Resolved]
  - Weight decreased [Recovering/Resolving]
  - Stomatitis [Recovering/Resolving]
  - Cheilitis [Recovering/Resolving]

NARRATIVE: CASE EVENT DATE: 20221001
